FAERS Safety Report 24416370 (Version 1)
Quarter: 2024Q4

REPORT INFORMATION
  Report Type: Spontaneous
  Country: DE (occurrence: DE)
  Receive Date: 20241009
  Receipt Date: 20241009
  Transmission Date: 20250114
  Serious: Yes (Life-Threatening, Hospitalization)
  Sender: PFIZER
  Company Number: None

PATIENT
  Age: 43 Year
  Sex: Female

DRUGS (4)
  1. EPIRUBICIN HYDROCHLORIDE [Suspect]
     Active Substance: EPIRUBICIN HYDROCHLORIDE
     Dosage: 1 DF
     Dates: start: 202403, end: 202406
  2. KEYTRUDA [Suspect]
     Active Substance: PEMBROLIZUMAB
     Indication: Neoplasm malignant
     Dosage: 16 DF
     Dates: start: 202312, end: 202406
  3. CARBOPLATIN [Suspect]
     Active Substance: CARBOPLATIN
     Dosage: 12 DF
     Dates: start: 202312, end: 202403
  4. PACLITAXEL [Suspect]
     Active Substance: PACLITAXEL
     Dosage: 1 DF
     Dates: start: 202312, end: 202403

REACTIONS (2)
  - Renal impairment [Not Recovered/Not Resolved]
  - Nephrotic syndrome [Not Recovered/Not Resolved]

NARRATIVE: CASE EVENT DATE: 20240714
